FAERS Safety Report 9283657 (Version 2)
Quarter: 2013Q4

REPORT INFORMATION
  Report Type: Report from Study
  Country: GB (occurrence: GB)
  Receive Date: 20130510
  Receipt Date: 20131205
  Transmission Date: 20140711
  Serious: Yes (Death, Hospitalization)
  Sender: FDA-Public Use
  Company Number: GB-CELGENEUS-167-21880-10021841

PATIENT
  Age: 68 Year
  Sex: Male
  Weight: 79 kg

DRUGS (18)
  1. REVLIMID [Suspect]
     Indication: PLASMA CELL MYELOMA
     Dosage: 5 MILLIGRAM
     Route: 048
     Dates: start: 20100205, end: 20100219
  2. REVLIMID [Suspect]
     Dosage: 10 MILLIGRAM
     Route: 048
     Dates: start: 20091211
  3. DEXAMETHASONE [Suspect]
     Indication: PLASMA CELL MYELOMA
     Route: 065
     Dates: start: 20091214, end: 20100219
  4. SANDO K [Concomitant]
     Indication: MINERAL SUPPLEMENTATION
     Dosage: 6 TABLET
     Route: 048
     Dates: start: 20100224
  5. BENZYDAMINE [Concomitant]
     Indication: MOUTH ULCERATION
     Dosage: 40 MILLILITER
     Route: 048
     Dates: start: 20100225
  6. ATORVASTATIN [Concomitant]
     Indication: HYPERCHOLESTEROLAEMIA
     Route: 048
     Dates: start: 1996
  7. HYDROCORTISONE [Concomitant]
     Indication: ADRENAL INSUFFICIENCY
     Dosage: 60 MG MORNING, 20 MG NIGHT
     Route: 048
     Dates: start: 200603
  8. LEVOTHYROXINE [Concomitant]
     Indication: HYPOTHYROIDISM
     Dosage: 50 MICROGRAM
     Route: 048
     Dates: start: 20100219
  9. ALLOPURINOL [Concomitant]
     Indication: PROPHYLAXIS
     Dosage: 300 MILLIGRAM
     Route: 048
     Dates: start: 20091211
  10. FORCEVAL [Concomitant]
     Indication: VITAMIN SUPPLEMENTATION
     Dosage: 1 CAPSULE
     Route: 048
     Dates: start: 200811
  11. TAMSULOSIN [Concomitant]
     Indication: URINARY RETENTION
     Dosage: 400 MICROGRAM
     Route: 048
  12. OMEPRAZOLE [Concomitant]
     Indication: ANTACID THERAPY
     Dosage: 20 MILLIGRAM
     Route: 048
  13. COTRIMOXAZOLE [Concomitant]
     Indication: ANTIBIOTIC PROPHYLAXIS
     Dosage: 960 MILLIGRAM
     Route: 048
     Dates: start: 20091211
  14. MEROPENEM [Concomitant]
     Indication: UPPER RESPIRATORY TRACT INFECTION
     Dosage: 3 GRAM
     Route: 041
     Dates: start: 20100221, end: 20100301
  15. SALINE [Concomitant]
     Indication: UPPER RESPIRATORY TRACT INFECTION
     Dosage: 20 MILLILITER
     Dates: start: 20100224, end: 20100301
  16. SALBUTAMOL [Concomitant]
     Indication: UPPER RESPIRATORY TRACT INFECTION
     Dosage: 10 MILLIGRAM
     Dates: start: 20100224, end: 20100301
  17. PARACETAMOL [Concomitant]
     Indication: ANALGESIC THERAPY
     Route: 041
     Dates: start: 20100221, end: 20100301
  18. PARACETAMOL [Concomitant]
     Indication: ANTIPYRESIS

REACTIONS (3)
  - Plasma cell myeloma [Fatal]
  - Muscular weakness [Not Recovered/Not Resolved]
  - Lower respiratory tract infection [Recovered/Resolved]
